FAERS Safety Report 24452270 (Version 1)
Quarter: 2024Q4

REPORT INFORMATION
  Report Type: Spontaneous
  Country: US (occurrence: US)
  Receive Date: 20241017
  Receipt Date: 20241017
  Transmission Date: 20250114
  Serious: No
  Sender: SUNOVION
  Company Number: US-SMPA-202402-URV-000167AA

PATIENT
  Age: 72 Year
  Sex: Female
  Weight: 71.655 kg

DRUGS (1)
  1. GEMTESA [Suspect]
     Active Substance: VIBEGRON
     Indication: Nocturia
     Dosage: 75 MG, QD
     Route: 048

REACTIONS (2)
  - Hip surgery [Recovered/Resolved]
  - Inability to afford medication [Not Recovered/Not Resolved]

NARRATIVE: CASE EVENT DATE: 20240101
